FAERS Safety Report 4507055-4 (Version None)
Quarter: 2004Q4

REPORT INFORMATION
  Report Type: 
  Country: None (occurrence: None)
  Receive Date: 20041117
  Receipt Date: 20041103
  Transmission Date: 20050328
  Serious: Yes (Hospitalization)
  Sender: FDA-Public Use
  Company Number: 2004-0007699

PATIENT
  Age: 34 Year
  Sex: Male

DRUGS (6)
  1. VIREAD [Suspect]
     Indication: HIV INFECTION
     Dosage: 300 MG, 1 IN 1 D, ORAL
     Route: 048
     Dates: start: 20020701, end: 20040916
  2. KALETRA [Concomitant]
  3. EPIVIR [Concomitant]
  4. ZIAGEN [Concomitant]
  5. ZYPREXA [Concomitant]
  6. PAROXETINE HCL [Concomitant]

REACTIONS (8)
  - BLOOD CALCIUM DECREASED [None]
  - BLOOD GLUCOSE INCREASED [None]
  - BLOOD PHOSPHORUS DECREASED [None]
  - BLOOD URIC ACID DECREASED [None]
  - BRONCHOPULMONARY ASPERGILLOSIS [None]
  - FANCONI SYNDROME ACQUIRED [None]
  - METABOLIC ACIDOSIS [None]
  - PROTEIN TOTAL INCREASED [None]
